FAERS Safety Report 9414491 (Version 1)
Quarter: 2013Q3

REPORT INFORMATION
  Report Type: Spontaneous
  Country: US (occurrence: US)
  Receive Date: 20130723
  Receipt Date: 20130723
  Transmission Date: 20140515
  Serious: No
  Sender: FDA-Public Use
  Company Number: US-B.I. PHARMACEUTICALS,INC./RIDGEFIELD-2013-BI-21355BP

PATIENT
  Age: 65 Year
  Sex: Female

DRUGS (6)
  1. SPIRIVA [Suspect]
     Indication: EMPHYSEMA
     Dosage: 18 MCG
     Route: 055
     Dates: start: 2004
  2. ADVAIR [Concomitant]
     Indication: EMPHYSEMA
     Dosage: STRENGTH: 500/ 50 MG;
     Route: 055
  3. ALBUTEROL NEBULIZER [Concomitant]
     Indication: EMPHYSEMA
     Route: 055
  4. LASIX [Concomitant]
     Indication: OEDEMA PERIPHERAL
     Route: 048
  5. POTASSIUM [Concomitant]
     Route: 048
  6. ZOCOR [Concomitant]
     Route: 048

REACTIONS (1)
  - Dyspnoea [Not Recovered/Not Resolved]
